FAERS Safety Report 12709094 (Version 1)
Quarter: 2016Q3

REPORT INFORMATION
  Report Type: Spontaneous
  Country: US (occurrence: US)
  Receive Date: 20160901
  Receipt Date: 20160901
  Transmission Date: 20161109
  Serious: No
  Sender: FDA-Public Use
  Company Number: US-JAZZ-2016-US-008529

PATIENT
  Sex: Female

DRUGS (33)
  1. XYREM [Suspect]
     Active Substance: SODIUM OXYBATE
     Dosage: 3 G, SECOND SOE
     Route: 048
     Dates: start: 201406
  2. NOVOLOG [Concomitant]
     Active Substance: INSULIN ASPART
  3. ESTRADIOL. [Concomitant]
     Active Substance: ESTRADIOL
  4. BROMFED [Concomitant]
     Active Substance: BROMPHENIRAMINE MALEATE\DEXTROMETHORPHAN HYDROBROMIDE\PSEUDOEPHEDRINE HYDROCHLORIDE
  5. XYREM [Suspect]
     Active Substance: SODIUM OXYBATE
     Dosage: 2 G, SECOND DOSE
     Route: 048
     Dates: start: 200905, end: 200907
  6. XYREM [Suspect]
     Active Substance: SODIUM OXYBATE
     Dosage: 6 G, FIRST DOSE
     Route: 048
     Dates: start: 200907
  7. XYREM [Suspect]
     Active Substance: SODIUM OXYBATE
     Dosage: 6 G, FIRST DOSE
     Route: 048
     Dates: start: 201406
  8. METFORMIN HCL [Concomitant]
     Active Substance: METFORMIN HYDROCHLORIDE
  9. BLACK COHOSH EXTRACT [Concomitant]
  10. MULTIVITAMINS [Concomitant]
     Active Substance: VITAMINS
  11. TAMIFLU [Concomitant]
     Active Substance: OSELTAMIVIR PHOSPHATE
  12. AMBIEN [Concomitant]
     Active Substance: ZOLPIDEM TARTRATE
  13. DURAGESIC [Concomitant]
     Active Substance: FENTANYL
  14. ADDERALL [Concomitant]
     Active Substance: AMPHETAMINE ASPARTATE\AMPHETAMINE SULFATE\DEXTROAMPHETAMINE SACCHARATE\DEXTROAMPHETAMINE SULFATE
  15. FLEXERIL [Concomitant]
     Active Substance: CYCLOBENZAPRINE HYDROCHLORIDE
  16. MOVANTIK [Concomitant]
     Active Substance: NALOXEGOL OXALATE
  17. CLONIDINE. [Concomitant]
     Active Substance: CLONIDINE
  18. ULTRAM [Concomitant]
     Active Substance: TRAMADOL HYDROCHLORIDE
  19. HUMALOG [Concomitant]
     Active Substance: INSULIN LISPRO
  20. LIDODERM [Concomitant]
     Active Substance: LIDOCAINE
  21. KLONOPIN [Concomitant]
     Active Substance: CLONAZEPAM
  22. XYREM [Suspect]
     Active Substance: SODIUM OXYBATE
     Indication: NARCOLEPSY
     Dosage: 4 G, FIRST DOSE
     Route: 048
     Dates: start: 200905, end: 200907
  23. PREMARIN [Suspect]
     Active Substance: ESTROGENS, CONJUGATED
     Indication: PRODUCT USED FOR UNKNOWN INDICATION
     Dosage: 0.3 MG,
     Route: 065
     Dates: start: 20140206, end: 20151110
  24. MIRALAX [Concomitant]
     Active Substance: POLYETHYLENE GLYCOL 3350
  25. METHADONE HCL [Concomitant]
     Active Substance: METHADONE HYDROCHLORIDE
  26. LYRICA [Concomitant]
     Active Substance: PREGABALIN
  27. XYREM [Suspect]
     Active Substance: SODIUM OXYBATE
     Dosage: 3 G, SECOND DOSE
     Route: 048
     Dates: start: 200907
  28. PREMARIN [Suspect]
     Active Substance: ESTROGENS, CONJUGATED
     Dosage: 0.625 MG
     Route: 065
     Dates: start: 20141028, end: 20151110
  29. LANTUS [Concomitant]
     Active Substance: INSULIN GLARGINE
  30. LISINOPRIL. [Concomitant]
     Active Substance: LISINOPRIL
  31. AMPHETAMINE [Concomitant]
     Active Substance: AMPHETAMINE
  32. SIMVASTATIN. [Concomitant]
     Active Substance: SIMVASTATIN
  33. NEURONTIN [Concomitant]
     Active Substance: GABAPENTIN

REACTIONS (5)
  - Intentional product use issue [Unknown]
  - Activities of daily living impaired [Unknown]
  - Pain in extremity [Unknown]
  - Myalgia [Unknown]
  - Enuresis [Unknown]
